FAERS Safety Report 7037521-1 (Version None)
Quarter: 2010Q4

REPORT INFORMATION
  Report Type: 
  Country: None (occurrence: None)
  Receive Date: 20101011
  Receipt Date: 20101004
  Transmission Date: 20110411
  Serious: Yes (Other)
  Sender: FDA-Public Use
  Company Number: B0678359A

PATIENT
  Sex: Male

DRUGS (4)
  1. ZANTAC [Suspect]
     Indication: PRODUCT USED FOR UNKNOWN INDICATION
     Dosage: 150MG PER DAY
     Route: 048
  2. EC DOPARL [Concomitant]
     Route: 048
  3. REQUIP [Concomitant]
     Route: 048
  4. DOPS (JAPAN) [Concomitant]
     Route: 048

REACTIONS (1)
  - PARKINSON'S DISEASE [None]
